FAERS Safety Report 12495661 (Version 2)
Quarter: 2018Q1

REPORT INFORMATION
  Report Type: Report from Study
  Country: KR (occurrence: KR)
  Receive Date: 20160624
  Receipt Date: 20180108
  Transmission Date: 20180508
  Serious: Yes (Hospitalization)
  Sender: FDA-Public Use
  Company Number: KR-EISAI MEDICAL RESEARCH-EC-2016-017897

PATIENT
  Age: 56 Year
  Sex: Female
  Weight: 52.6 kg

DRUGS (5)
  1. HALAVEN [Suspect]
     Active Substance: ERIBULIN MESYLATE
     Indication: BREAST CANCER METASTATIC
     Route: 041
     Dates: start: 20150716, end: 20160304
  2. LENOGRASTIM [Concomitant]
     Active Substance: LENOGRASTIM
  3. MORPHINE [Concomitant]
     Active Substance: MORPHINE
  4. STILLEN [Concomitant]
  5. HALAVEN [Suspect]
     Active Substance: ERIBULIN MESYLATE

REACTIONS (2)
  - Febrile neutropenia [Not Recovered/Not Resolved]
  - Vomiting [Recovered/Resolved]

NARRATIVE: CASE EVENT DATE: 20150729
